FAERS Safety Report 9914160 (Version 1)
Quarter: 2014Q1

REPORT INFORMATION
  Report Type: Spontaneous
  Country: US (occurrence: US)
  Receive Date: 20140220
  Receipt Date: 20140220
  Transmission Date: 20141002
  Serious: No
  Sender: FDA-Public Use
  Company Number: US-B.I. PHARMACEUTICALS,INC./RIDGEFIELD-2014-BI-06404BP

PATIENT
  Sex: Female

DRUGS (5)
  1. ZANTAC 75 (RANITIDINE HYDROCHLORIDE) [Suspect]
     Indication: DYSPEPSIA
     Dosage: 75 MG
     Route: 048
     Dates: start: 2012, end: 2013
  2. ACIPHEX [Concomitant]
     Indication: GASTROOESOPHAGEAL REFLUX DISEASE
     Route: 048
  3. METHOTREXATE [Concomitant]
     Indication: ARTHRITIS
     Route: 048
  4. STEROIDS [Concomitant]
     Indication: AUTOIMMUNE DISORDER
     Route: 048
  5. HUMERA [Concomitant]

REACTIONS (2)
  - Barrett^s oesophagus [Not Recovered/Not Resolved]
  - Incorrect drug administration duration [Recovered/Resolved]
